FAERS Safety Report 8005140-6 (Version None)
Quarter: 2011Q4

REPORT INFORMATION
  Report Type: 
  Country: None (occurrence: None)
  Receive Date: 20111223
  Receipt Date: 20111215
  Transmission Date: 20120403
  Serious: Yes (Hospitalization, Other)
  Sender: FDA-Public Use
  Company Number: PHHY2011US61651

PATIENT
  Sex: Female

DRUGS (10)
  1. DOCUSATE SODIUM [Concomitant]
  2. ARIMIDEX [Concomitant]
  3. METAMUCIL-2 [Concomitant]
  4. LASIX [Concomitant]
  5. ASPIRIN [Concomitant]
  6. CIPROFLOXACIN [Concomitant]
  7. COZAAR [Concomitant]
  8. OMEPRAZOLE [Concomitant]
  9. EXJADE [Suspect]
     Dosage: 2000 MG, DAILY
     Route: 048
  10. EXJADE [Suspect]
     Indication: MYELODYSPLASTIC SYNDROME
     Dosage: 2000 MG, DAILY
     Route: 048
     Dates: start: 20110623

REACTIONS (7)
  - URINE OUTPUT INCREASED [None]
  - URINARY TRACT INFECTION [None]
  - CHEST PAIN [None]
  - MYALGIA [None]
  - CONSTIPATION [None]
  - ARTHRALGIA [None]
  - DIARRHOEA [None]
